FAERS Safety Report 6962171-2 (Version None)
Quarter: 2010Q3

REPORT INFORMATION
  Report Type: 
  Country: None (occurrence: None)
  Receive Date: 20100901
  Receipt Date: 20100901
  Transmission Date: 20110219
  Serious: Yes (Other)
  Sender: FDA-Public Use
  Company Number: None

PATIENT
  Age: 48 Year
  Sex: Female
  Weight: 58.9676 kg

DRUGS (1)
  1. NODOZ 200MG NOVARTIS CONSUMER HEALTH, INC. [Suspect]
     Indication: HYPERVIGILANCE
     Dosage: 1 200MG TABLET 1 EVERY A.M. PO
     Route: 048
     Dates: start: 20100830, end: 20100831

REACTIONS (2)
  - PRODUCT SUBSTITUTION ISSUE [None]
  - VOMITING [None]
